FAERS Safety Report 6642803-9 (Version None)
Quarter: 2010Q1

REPORT INFORMATION
  Report Type: 
  Country: None (occurrence: None)
  Receive Date: 20100319
  Receipt Date: 20100309
  Transmission Date: 20100710
  Serious: Yes (Other)
  Sender: FDA-Public Use
  Company Number: US-PFIZER INC-2010004560

PATIENT
  Sex: Male

DRUGS (2)
  1. CHANTIX [Suspect]
     Indication: SMOKING CESSATION THERAPY
     Dosage: 1.0 MG, 2X/DAY
     Dates: start: 20091101, end: 20100112
  2. ATROPINE [Concomitant]
     Dosage: UNK, DAILY

REACTIONS (11)
  - ABNORMAL DREAMS [None]
  - ABSTAINS FROM ALCOHOL [None]
  - AFFECT LABILITY [None]
  - ANXIETY [None]
  - DEPRESSED MOOD [None]
  - HEADACHE [None]
  - INSOMNIA [None]
  - IRRITABILITY [None]
  - MENTAL DISORDER [None]
  - PERFORMANCE STATUS DECREASED [None]
  - SUICIDAL IDEATION [None]
